FAERS Safety Report 10097736 (Version 1)
Quarter: 2014Q2

REPORT INFORMATION
  Report Type: Spontaneous
  Country: US (occurrence: US)
  Receive Date: 20140423
  Receipt Date: 20140423
  Transmission Date: 20141212
  Serious: No
  Sender: FDA-Public Use
  Company Number: US-BIOGENIDEC-2014BI034823

PATIENT
  Sex: Female

DRUGS (1)
  1. TECFIDERA [Suspect]
     Indication: PRODUCT USED FOR UNKNOWN INDICATION
     Dates: start: 20140319

REACTIONS (7)
  - Dizziness [Unknown]
  - Mobility decreased [Unknown]
  - Asthenia [Unknown]
  - Fall [Recovered/Resolved]
  - Anxiety [Unknown]
  - Pain [Unknown]
  - Drug ineffective [Unknown]
